FAERS Safety Report 11933892 (Version 2)
Quarter: 2016Q1

REPORT INFORMATION
  Report Type: Spontaneous
  Country: ES (occurrence: ES)
  Receive Date: 20160121
  Receipt Date: 20160129
  Transmission Date: 20160526
  Serious: Yes (Hospitalization, Other)
  Sender: FDA-Public Use
  Company Number: ES-009507513-1601ESP006470

PATIENT
  Age: 70 Year
  Sex: Male

DRUGS (8)
  1. INTRON A [Suspect]
     Active Substance: INTERFERON ALFA-2B
     Indication: METASTATIC MALIGNANT MELANOMA
     Dosage: 18 MILLION IU THREE TIMES A WEEK
     Route: 058
     Dates: start: 20120910, end: 20121010
  2. DUODART [Concomitant]
     Active Substance: DUTASTERIDE\TAMSULOSIN
     Dosage: TOTAL DAILY DOSE REPORTED AS 0-0-1, QD
  3. METFORMIN [Concomitant]
     Active Substance: METFORMIN HYDROCHLORIDE
     Dosage: TOTAL DAILY DOSE REPORTED AS 0-1-0, QD
  4. INTRON A [Suspect]
     Active Substance: INTERFERON ALFA-2B
     Dosage: 40 MILLION IU/DAILY DURING 5 DAYS IN THE INDUCTION FIRST WEEK
     Route: 058
     Dates: start: 20120813, end: 20120909
  5. TROMALYT [Concomitant]
     Active Substance: ASPIRIN
     Dosage: 150 MG, QD
  6. INTRON A [Suspect]
     Active Substance: INTERFERON ALFA-2B
     Dosage: UNK
     Route: 058
     Dates: start: 20121025
  7. ATORVASTATIN [Concomitant]
     Active Substance: ATORVASTATIN
     Dosage: TOTAL DAILY DOSE REPORTED AS 0-0-1
  8. PRITOR PLUS [Concomitant]
     Active Substance: TELMISARTAN
     Dosage: 80MG/UNK, QD

REACTIONS (36)
  - Haematocrit decreased [Recovered/Resolved]
  - Gamma-glutamyltransferase increased [Recovered/Resolved]
  - Oedema peripheral [Unknown]
  - Red blood cell count decreased [Recovered/Resolved]
  - Asthenia [Recovered/Resolved]
  - Lower respiratory tract infection [Recovered/Resolved]
  - Apathy [Recovered/Resolved]
  - Neutrophil count decreased [Recovered/Resolved]
  - Asthenia [Recovered/Resolved]
  - Thrombocytopenia [Recovered/Resolved]
  - Affective disorder [Recovered/Resolved]
  - Gamma-glutamyltransferase increased [Recovered/Resolved]
  - Transaminases increased [Recovered/Resolved]
  - Erythema [Unknown]
  - Alanine aminotransferase increased [Recovered/Resolved]
  - Asthenia [Recovered/Resolved]
  - Monocyte count decreased [Recovered/Resolved]
  - Weight decreased [Unknown]
  - Aspartate aminotransferase increased [Recovered/Resolved]
  - White blood cell count decreased [Recovered/Resolved]
  - Metastases to lung [Not Recovered/Not Resolved]
  - Asthenia [Recovered/Resolved]
  - Febrile neutropenia [Recovered/Resolved]
  - Hypoxia [Recovered/Resolved]
  - Musculoskeletal disorder [Recovered/Resolved]
  - Decreased appetite [Recovered/Resolved]
  - Haemoglobin decreased [Recovered/Resolved]
  - Dysgeusia [Recovered/Resolved]
  - Diarrhoea [Recovered/Resolved]
  - Platelet count decreased [Recovered/Resolved]
  - Radiation skin injury [Unknown]
  - Lymphocyte count decreased [Recovered/Resolved]
  - Blood alkaline phosphatase increased [Recovered/Resolved]
  - Blood alkaline phosphatase increased [Recovered/Resolved]
  - Decreased appetite [Recovered/Resolved]
  - Asthenia [Recovered/Resolved]

NARRATIVE: CASE EVENT DATE: 20120827
